FAERS Safety Report 5936485-9 (Version None)
Quarter: 2008Q4

REPORT INFORMATION
  Report Type: 
  Country: None (occurrence: None)
  Receive Date: 20081030
  Receipt Date: 20080912
  Transmission Date: 20090506
  Serious: No
  Sender: FDA-Public Use
  Company Number: US-BAYER-200832982NA

PATIENT
  Sex: Male

DRUGS (1)
  1. ULTRAVIST (PHARMACY BULK) [Suspect]
     Indication: COMPUTERISED TOMOGRAM THORAX
     Dates: start: 20080827, end: 20080827

REACTIONS (3)
  - DYSPNOEA [None]
  - PRURITUS [None]
  - URTICARIA [None]
